FAERS Safety Report 8025199-X (Version None)
Quarter: 2012Q1

REPORT INFORMATION
  Report Type: 
  Country: None (occurrence: None)
  Receive Date: 20120105
  Receipt Date: 20111227
  Transmission Date: 20120608
  Serious: Yes (Hospitalization, Other)
  Sender: FDA-Public Use
  Company Number: JP-GLAXOSMITHKLINE-B0770000A

PATIENT
  Age: 29 Year
  Sex: Male

DRUGS (7)
  1. LAMICTAL [Suspect]
     Indication: PRODUCT USED FOR UNKNOWN INDICATION
     Dosage: 1350MG PER DAY
     Route: 048
     Dates: start: 20111215, end: 20111215
  2. MEILAX [Suspect]
     Indication: PRODUCT USED FOR UNKNOWN INDICATION
     Dosage: 20MG PER DAY
     Route: 048
     Dates: start: 20111215, end: 20111215
  3. RABEPRAZOLE SODIUM [Suspect]
     Indication: PRODUCT USED FOR UNKNOWN INDICATION
     Dosage: 120MG PER DAY
     Route: 048
     Dates: start: 20111215, end: 20111215
  4. HALCION [Suspect]
     Indication: PRODUCT USED FOR UNKNOWN INDICATION
     Dosage: 2.5MG PER DAY
     Route: 048
     Dates: start: 20111215, end: 20111215
  5. DEPAS [Suspect]
     Indication: PRODUCT USED FOR UNKNOWN INDICATION
     Dosage: 6MG PER DAY
     Route: 048
     Dates: start: 20111215, end: 20111215
  6. ROHYPNOL [Suspect]
     Indication: PRODUCT USED FOR UNKNOWN INDICATION
     Dosage: 20MG PER DAY
     Route: 048
     Dates: start: 20111215, end: 20111215
  7. ABILIFY [Suspect]
     Indication: PRODUCT USED FOR UNKNOWN INDICATION
     Dosage: 60MG PER DAY
     Route: 048
     Dates: start: 20111215, end: 20111215

REACTIONS (6)
  - BLOOD CREATINE PHOSPHOKINASE INCREASED [None]
  - DEPRESSED LEVEL OF CONSCIOUSNESS [None]
  - BLOOD CREATININE INCREASED [None]
  - COMMUNICATION DISORDER [None]
  - MULTIPLE DRUG OVERDOSE [None]
  - AGITATION [None]
